FAERS Safety Report 9513878 (Version 4)
Quarter: 2013Q4

REPORT INFORMATION
  Report Type: Report from Study
  Country: GB (occurrence: GB)
  Receive Date: 20130910
  Receipt Date: 20131107
  Transmission Date: 20140711
  Serious: Yes (Death, Hospitalization, Other)
  Sender: FDA-Public Use
  Company Number: GB-ROCHE-1272912

PATIENT
  Age: 78 Year
  Sex: Male

DRUGS (17)
  1. RANIBIZUMAB [Suspect]
     Indication: AGE-RELATED MACULAR DEGENERATION
     Route: 050
     Dates: start: 20111007
  2. RANIBIZUMAB [Suspect]
     Route: 050
     Dates: start: 20120821
  3. ZOMORPH [Concomitant]
     Route: 065
     Dates: start: 20130108, end: 20130117
  4. AMOXICILLIN [Concomitant]
     Route: 065
     Dates: start: 20130108, end: 20130115
  5. CLARITHROMYCIN [Concomitant]
     Route: 065
     Dates: start: 20130108, end: 20130113
  6. TRIMETHOPRIM [Concomitant]
     Route: 065
     Dates: start: 20130108, end: 20130108
  7. ENOXAPARIN [Concomitant]
     Route: 065
     Dates: start: 20130108, end: 20130118
  8. LANSOPRAZOLE [Concomitant]
     Route: 065
     Dates: start: 20130108, end: 20130117
  9. ATORVASTATIN [Concomitant]
     Route: 065
     Dates: start: 20130108, end: 20130117
  10. NYSTATIN [Concomitant]
     Route: 065
     Dates: start: 20130108, end: 20130108
  11. NYSTATIN [Concomitant]
     Route: 065
     Dates: start: 20130117, end: 20130118
  12. SENNA [Concomitant]
     Route: 065
     Dates: start: 20130108, end: 20130118
  13. PARACETAMOL [Concomitant]
     Route: 065
     Dates: start: 20130108, end: 20130118
  14. ADCAL - D3 [Concomitant]
     Route: 065
     Dates: start: 20130110, end: 20130117
  15. ALENDRONATE [Concomitant]
     Route: 065
     Dates: start: 20130110, end: 20130117
  16. BUMETANIDE [Concomitant]
     Route: 065
     Dates: start: 20130115, end: 20130117
  17. ALFENTANIL [Concomitant]
     Route: 065
     Dates: start: 20130118

REACTIONS (18)
  - B-cell lymphoma [Fatal]
  - Non-Hodgkin^s lymphoma [Fatal]
  - Fall [Fatal]
  - Ureteral disorder [Unknown]
  - Age-related macular degeneration [Not Recovered/Not Resolved]
  - Haemoglobin decreased [Unknown]
  - Serum ferritin increased [Unknown]
  - Prothrombin time prolonged [Unknown]
  - Blood sodium decreased [Unknown]
  - Blood potassium increased [Unknown]
  - Blood creatinine increased [Unknown]
  - Blood albumin decreased [Unknown]
  - Protein total decreased [Unknown]
  - Blood alkaline phosphatase increased [Unknown]
  - C-reactive protein increased [Unknown]
  - International normalised ratio abnormal [Unknown]
  - Blood calcium decreased [Unknown]
  - Visual acuity reduced [Unknown]
